FAERS Safety Report 24019817 (Version 1)
Quarter: 2024Q2

REPORT INFORMATION
  Report Type: Spontaneous
  Country: US (occurrence: None)
  Receive Date: 20240626
  Receipt Date: 20240626
  Transmission Date: 20240716
  Serious: Yes (Other)
  Sender: FDA-Public Use
  Company Number: None

PATIENT
  Age: 56 Year
  Sex: Female

DRUGS (1)
  1. ZARXIO [Suspect]
     Active Substance: FILGRASTIM-SNDZ
     Indication: Neutropenia
     Dosage: FREQUENCY : DAILY;?
     Route: 058
     Dates: start: 20240529, end: 20240625

REACTIONS (2)
  - Neutropenia [None]
  - Therapy cessation [None]

NARRATIVE: CASE EVENT DATE: 20240625
